FAERS Safety Report 12308893 (Version 1)
Quarter: 2016Q2

REPORT INFORMATION
  Report Type: Report from Study
  Country: CN (occurrence: CN)
  Receive Date: 20160427
  Receipt Date: 20160427
  Transmission Date: 20160815
  Serious: Yes (Death)
  Sender: FDA-Public Use
  Company Number: CN-ROCHE-1473455

PATIENT
  Sex: Female
  Weight: 55 kg

DRUGS (2)
  1. AVASTIN [Suspect]
     Active Substance: BEVACIZUMAB
     Route: 042
     Dates: start: 20140408, end: 20150702
  2. AVASTIN [Suspect]
     Active Substance: BEVACIZUMAB
     Indication: COLON CANCER
     Route: 042
     Dates: start: 20130716, end: 20140208

REACTIONS (3)
  - White blood cell count decreased [Unknown]
  - Condition aggravated [Fatal]
  - Weight increased [Unknown]
